FAERS Safety Report 8889214 (Version 5)
Quarter: 2013Q1

REPORT INFORMATION
  Report Type: Spontaneous
  Country: DK (occurrence: DK)
  Receive Date: 20121106
  Receipt Date: 20130110
  Transmission Date: 20140127
  Serious: Yes (Hospitalization)
  Sender: FDA-Public Use
  Company Number: DK-ROCHE-1151752

PATIENT
  Age: 70 Year
  Sex: Female

DRUGS (4)
  1. BONVIVA [Suspect]
     Indication: OSTEOPOROSIS
     Route: 042
     Dates: start: 20120705, end: 20121023
  2. SELOZOK [Concomitant]
     Indication: TACHYCARDIA
     Route: 048
  3. LOCERYL [Concomitant]
     Indication: ONYCHOMYCOSIS
     Route: 065
     Dates: start: 20111022
  4. HJERTEMAGNYL [Concomitant]

REACTIONS (2)
  - Skin burning sensation [Recovering/Resolving]
  - Rash erythematous [Recovering/Resolving]
